FAERS Safety Report 13664390 (Version 1)
Quarter: 2017Q2

REPORT INFORMATION
  Report Type: Spontaneous
  Country: US (occurrence: US)
  Receive Date: 20170616
  Receipt Date: 20170616
  Transmission Date: 20170830
  Serious: Yes (Hospitalization)
  Sender: FDA-Public Use
  Company Number: None

PATIENT
  Age: 63 Year
  Sex: Female

DRUGS (1)
  1. KISQALI [Suspect]
     Active Substance: RIBOCICLIB
     Indication: PRODUCT USED FOR UNKNOWN INDICATION
     Dosage: 600MG DAILY FOR 21 DAYS ON 7 DAYS OFF PO
     Route: 048
     Dates: start: 20170501

REACTIONS (1)
  - Anaemia [None]

NARRATIVE: CASE EVENT DATE: 20170529
